FAERS Safety Report 7994854-X (Version None)
Quarter: 2011Q4

REPORT INFORMATION
  Report Type: 
  Country: None (occurrence: None)
  Receive Date: 20111220
  Receipt Date: 20111215
  Transmission Date: 20120403
  Serious: Yes (Life-Threatening)
  Sender: FDA-Public Use
  Company Number: AU-ROCHE-1022474

PATIENT
  Sex: Female

DRUGS (8)
  1. ROCEPHIN [Suspect]
     Indication: PRODUCT USED FOR UNKNOWN INDICATION
     Route: 048
     Dates: start: 20110216, end: 20110226
  2. METHYLPREDNISOLONE [Concomitant]
     Dates: start: 20110214, end: 20110214
  3. VANCOMYCIN HCL [Suspect]
     Indication: PRODUCT USED FOR UNKNOWN INDICATION
     Dates: start: 20110215, end: 20110226
  4. TIMENTIN [Concomitant]
     Dates: start: 20110213, end: 20110218
  5. RITUXIMAB [Concomitant]
  6. OMEPRAZOLE [Concomitant]
  7. BACTRIM [Suspect]
     Indication: PRODUCT USED FOR UNKNOWN INDICATION
  8. GENTAMICIN SULFATE [Concomitant]
     Dates: start: 20110214, end: 20110214

REACTIONS (4)
  - LUNG CONSOLIDATION [None]
  - SEPSIS [None]
  - TOXIC EPIDERMAL NECROLYSIS [None]
  - PYREXIA [None]
